FAERS Safety Report 6160203-5 (Version None)
Quarter: 2009Q2

REPORT INFORMATION
  Report Type: 
  Country: None (occurrence: None)
  Receive Date: 20090420
  Receipt Date: 20090414
  Transmission Date: 20091009
  Serious: Yes (Hospitalization)
  Sender: FDA-Public Use
  Company Number: B0553073A

PATIENT
  Sex: Male

DRUGS (5)
  1. VALTREX [Suspect]
     Indication: HERPES ZOSTER
     Dosage: 1000MG THREE TIMES PER DAY
     Route: 048
     Dates: start: 20081229, end: 20090103
  2. ALCOHOL [Suspect]
     Indication: DRUG USE FOR UNKNOWN INDICATION
     Dosage: 1.8L CUMULATIVE DOSE
     Route: 065
  3. LOXONIN [Concomitant]
     Indication: PAIN
     Route: 048
  4. MUCOSTA [Concomitant]
     Indication: ANOREXIA
     Dosage: 300MG PER DAY
     Route: 048
     Dates: start: 20081229, end: 20090103
  5. GASMOTIN [Concomitant]
     Indication: ANOREXIA
     Dosage: 15MG PER DAY
     Route: 048
     Dates: start: 20081229, end: 20090103

REACTIONS (10)
  - ABDOMINAL DISTENSION [None]
  - ANOREXIA [None]
  - DEHYDRATION [None]
  - DIARRHOEA [None]
  - EATING DISORDER [None]
  - MALAISE [None]
  - NAUSEA [None]
  - RENAL FAILURE [None]
  - RENAL FAILURE ACUTE [None]
  - WEIGHT DECREASED [None]
